FAERS Safety Report 5429899-7 (Version None)
Quarter: 2007Q3

REPORT INFORMATION
  Report Type: 
  Country: None (occurrence: None)
  Receive Date: 20070829
  Receipt Date: 20070820
  Transmission Date: 20080115
  Serious: Yes (Disabling, Other)
  Sender: FDA-Public Use
  Company Number: US-PFIZER INC-2006088311

PATIENT
  Sex: Female

DRUGS (3)
  1. ATORVASTATIN CALCIUM [Suspect]
     Dates: start: 19990801, end: 20070101
  2. CELEBREX [Concomitant]
  3. FOSAMAX [Concomitant]

REACTIONS (10)
  - AMNESIA [None]
  - BALANCE DISORDER [None]
  - CEREBRAL ATROPHY [None]
  - CEREBRAL ISCHAEMIA [None]
  - CONFUSIONAL STATE [None]
  - DEPRESSION [None]
  - FATIGUE [None]
  - HOSTILITY [None]
  - IRRITABILITY [None]
  - NEUROPATHY PERIPHERAL [None]
